FAERS Safety Report 8206623-6 (Version None)
Quarter: 2012Q1

REPORT INFORMATION
  Report Type: 
  Country: None (occurrence: None)
  Receive Date: 20120314
  Receipt Date: 20120305
  Transmission Date: 20120608
  Serious: Yes (Hospitalization, Other)
  Sender: FDA-Public Use
  Company Number: US-BIOGENIDEC-2010BI007537

PATIENT
  Age: 38 Year
  Sex: Female
  Weight: 46 kg

DRUGS (1)
  1. TYSABRI [Suspect]
     Indication: MULTIPLE SCLEROSIS
     Route: 042
     Dates: start: 20070806, end: 20100224

REACTIONS (10)
  - LUNG DISORDER [None]
  - IMMUNE RECONSTITUTION SYNDROME [None]
  - MUSCULAR WEAKNESS [None]
  - THROMBOCYTOPENIA [None]
  - PROGRESSIVE MULTIFOCAL LEUKOENCEPHALOPATHY [None]
  - MULTIPLE SCLEROSIS RELAPSE [None]
  - PARTIAL SEIZURES WITH SECONDARY GENERALISATION [None]
  - POST LUMBAR PUNCTURE SYNDROME [None]
  - INFUSION SITE CELLULITIS [None]
  - URINARY TRACT INFECTION PSEUDOMONAL [None]
